FAERS Safety Report 11274764 (Version 7)
Quarter: 2015Q4

REPORT INFORMATION
  Report Type: Report from Study
  Country: CA (occurrence: CA)
  Receive Date: 20150716
  Receipt Date: 20151110
  Transmission Date: 20160304
  Serious: Yes (Hospitalization, Other)
  Sender: FDA-Public Use
  Company Number: CA-UCBSA-2015022770

PATIENT
  Age: 60 Year
  Sex: Female

DRUGS (2)
  1. CERTOLIZUMAB PEGOL RA [Suspect]
     Active Substance: CERTOLIZUMAB PEGOL
     Dosage: 400 MG, EV 2 WEEKS(QOW)
     Route: 058
     Dates: start: 20150915, end: 2015
  2. CERTOLIZUMAB PEGOL RA [Suspect]
     Active Substance: CERTOLIZUMAB PEGOL
     Indication: RHEUMATOID ARTHRITIS
     Dosage: 400 MG, EV 2 WEEKS(QOW) X 3
     Route: 058
     Dates: start: 20150623, end: 20150623

REACTIONS (5)
  - Fall [Recovered/Resolved]
  - Lung infection [Unknown]
  - Femur fracture [Recovered/Resolved]
  - Upper respiratory tract infection [Not Recovered/Not Resolved]
  - Fungal skin infection [Not Recovered/Not Resolved]

NARRATIVE: CASE EVENT DATE: 2015
